FAERS Safety Report 7599839-3 (Version None)
Quarter: 2011Q3

REPORT INFORMATION
  Report Type: 
  Country: None (occurrence: None)
  Receive Date: 20110711
  Receipt Date: 20110628
  Transmission Date: 20111222
  Serious: Yes (Other)
  Sender: FDA-Public Use
  Company Number: CA-JNJFOC-20110700775

PATIENT
  Weight: 1.7 kg

DRUGS (7)
  1. REMICADE [Suspect]
     Indication: MATERNAL EXPOSURE DURING PREGNANCY
     Route: 064
     Dates: start: 20070701
  2. LABETALOL HCL [Concomitant]
  3. SEREVENT [Concomitant]
  4. DOMPERIDONE [Concomitant]
  5. PULMICORT [Concomitant]
  6. PROZAC [Concomitant]
  7. PREDNISONE [Concomitant]

REACTIONS (1)
  - FOETAL GROWTH RESTRICTION [None]
